FAERS Safety Report 18579495 (Version 2)
Quarter: 2020Q4

REPORT INFORMATION
  Report Type: Spontaneous
  Country: CA (occurrence: CA)
  Receive Date: 20201204
  Receipt Date: 20201216
  Transmission Date: 20210114
  Serious: Yes (Hospitalization, Other)
  Sender: FDA-Public Use
  Company Number: CA-PFIZER INC-2020462967

PATIENT
  Age: 64 Year
  Sex: Male

DRUGS (3)
  1. LORBRENA [Suspect]
     Active Substance: LORLATINIB
     Dosage: UNK
     Dates: start: 20201124, end: 2020
  2. LORBRENA [Suspect]
     Active Substance: LORLATINIB
     Dosage: RESTARTED AT HALF DOSE
     Dates: start: 20201203, end: 202012
  3. LORBRENA [Suspect]
     Active Substance: LORLATINIB
     Dosage: FULL DOSE
     Dates: start: 20201210

REACTIONS (2)
  - Epilepsy [Unknown]
  - Off label use [Unknown]

NARRATIVE: CASE EVENT DATE: 20201124
